FAERS Safety Report 9157351 (Version 1)
Quarter: 2013Q1

REPORT INFORMATION
  Report Type: Spontaneous
  Country: DK (occurrence: FR)
  Receive Date: 20130312
  Receipt Date: 20130312
  Transmission Date: 20140127
  Serious: Yes (Hospitalization)
  Sender: FDA-Public Use
  Company Number: FR-FRI-1000043245

PATIENT
  Age: 58 Year
  Sex: Male

DRUGS (4)
  1. ESCITALOPRAM [Suspect]
     Indication: DEPRESSION
     Dosage: 10 MG
     Route: 048
     Dates: start: 20121019, end: 20121114
  2. ESCITALOPRAM [Suspect]
     Indication: SUICIDAL IDEATION
  3. PEGASYS [Suspect]
     Dosage: 180 MCG WEEKLY
     Route: 042
     Dates: start: 20120827, end: 20121219
  4. COPEGUS [Suspect]
     Dosage: 1000 MG
     Route: 048
     Dates: start: 20120827, end: 20121219

REACTIONS (1)
  - Hepatitis [Recovering/Resolving]
